FAERS Safety Report 19419784 (Version 2)
Quarter: 2021Q3

REPORT INFORMATION
  Report Type: Spontaneous
  Country: US (occurrence: US)
  Receive Date: 20210615
  Receipt Date: 20210826
  Transmission Date: 20211014
  Serious: No
  Sender: FDA-Public Use
  Company Number: US-PFIZER INC-2021705770

PATIENT
  Age: 33 Year
  Sex: Female
  Weight: 90.7 kg

DRUGS (4)
  1. PARAPLATIN [Concomitant]
     Active Substance: CARBOPLATIN
     Indication: CHEMOTHERAPY
     Dosage: 900 MG
     Route: 042
  2. TAXOTERE [Suspect]
     Active Substance: DOCETAXEL
     Indication: TRIPLE POSITIVE BREAST CANCER
     Dosage: 150 MG, CYCLIC (EVERY THREE WEEKS, FOR 6 CYCLES)
     Route: 042
     Dates: start: 20110405, end: 20110816
  3. DOCETAXEL. [Suspect]
     Active Substance: DOCETAXEL
     Indication: TRIPLE POSITIVE BREAST CANCER
     Dosage: 150 MG, CYCLIC (EVERY THREE WEEKS, FOR 6 CYCLES)
     Dates: start: 20110405, end: 20110816
  4. DOCETAXEL SANOFI AVENTIS [Suspect]
     Active Substance: DOCETAXEL
     Indication: TRIPLE POSITIVE BREAST CANCER
     Dosage: 150 MG, CYCLIC (EVERY THREE WEEKS, FOR 6 CYCLES)
     Dates: start: 20110405, end: 20110816

REACTIONS (2)
  - Alopecia [Not Recovered/Not Resolved]
  - Madarosis [Not Recovered/Not Resolved]

NARRATIVE: CASE EVENT DATE: 20111201
